FAERS Safety Report 9041070 (Version 1)
Quarter: 2013Q1

REPORT INFORMATION
  Report Type: Spontaneous
  Country: US (occurrence: None)
  Receive Date: 20130124
  Receipt Date: 20130124
  Transmission Date: 20140127
  Serious: Yes (Life-Threatening, Other)
  Sender: FDA-Public Use
  Company Number: None

PATIENT
  Age: 63 Year
  Sex: Female
  Weight: 90.72 kg

DRUGS (2)
  1. SOLIFENACIN SUCCINATE [Suspect]
     Dosage: 5 MG,   (1) 1 TIME A DAY
     Dates: start: 20120925, end: 20121123
  2. TROSPIUM [Suspect]
     Dosage: 20 MG.  (1)  2 TIMES A DAY
     Dates: start: 20121124, end: 20130103

REACTIONS (8)
  - Dizziness [None]
  - Fatigue [None]
  - Body temperature increased [None]
  - Chest pain [None]
  - Confusional state [None]
  - Anxiety [None]
  - Emotional distress [None]
  - Delirium [None]
